FAERS Safety Report 9667215 (Version 3)
Quarter: 2014Q1

REPORT INFORMATION
  Report Type: Spontaneous
  Country: US (occurrence: US)
  Receive Date: 20131104
  Receipt Date: 20140325
  Transmission Date: 20141002
  Serious: No
  Sender: FDA-Public Use
  Company Number: US-BIOGENIDEC-2013BI090388

PATIENT
  Age: 74 Year
  Sex: Male

DRUGS (19)
  1. TECFIDERA [Suspect]
     Indication: MULTIPLE SCLEROSIS
  2. TECFIDERA [Suspect]
     Indication: MULTIPLE SCLEROSIS
     Route: 048
  3. TECFIDERA [Suspect]
     Indication: MULTIPLE SCLEROSIS
     Route: 048
     Dates: start: 20130116
  4. AMPYRA [Concomitant]
  5. ANDROGEL [Concomitant]
  6. ASPIRIN LOW DOSE [Concomitant]
  7. LEXAPRO [Concomitant]
  8. LIDOCAINE [Concomitant]
  9. LIPITOR [Concomitant]
  10. LUMIGAN [Concomitant]
  11. MYRBETRIQ [Concomitant]
  12. PEPTO-BISMOL MAX STRENGTH [Concomitant]
  13. PLAVIX [Concomitant]
  14. PROVIGIL [Concomitant]
  15. RANEXA [Concomitant]
  16. SINGULAIR [Concomitant]
  17. SPIRIVA HANDIHALER [Concomitant]
  18. TOPROL XL [Concomitant]
  19. TRICOR [Concomitant]

REACTIONS (6)
  - Chronic obstructive pulmonary disease [Not Recovered/Not Resolved]
  - Asthma [Not Recovered/Not Resolved]
  - Sleep disorder [Not Recovered/Not Resolved]
  - Flushing [Not Recovered/Not Resolved]
  - Pruritus [Not Recovered/Not Resolved]
  - Burning sensation [Unknown]
